FAERS Safety Report 12916645 (Version 2)
Quarter: 2017Q1

REPORT INFORMATION
  Report Type: Spontaneous
  Country: US (occurrence: US)
  Receive Date: 20161107
  Receipt Date: 20170131
  Transmission Date: 20170428
  Serious: No
  Sender: FDA-Public Use
  Company Number: US-009507513-1610USA012951

PATIENT
  Age: 16 Year
  Sex: Female
  Weight: 59.86 kg

DRUGS (1)
  1. NEXPLANON [Suspect]
     Active Substance: ETONOGESTREL
     Indication: CONTRACEPTION
     Dosage: 1 DF, ONCE
     Route: 059
     Dates: start: 20161017

REACTIONS (2)
  - Complication associated with device [Unknown]
  - No adverse event [Unknown]

NARRATIVE: CASE EVENT DATE: 20161019
